FAERS Safety Report 24137161 (Version 2)
Quarter: 2024Q3

REPORT INFORMATION
  Report Type: Spontaneous
  Country: CO (occurrence: CO)
  Receive Date: 20240725
  Receipt Date: 20240802
  Transmission Date: 20241017
  Serious: Yes (Other)
  Sender: LUNDBECK
  Company Number: CO-SA-SAC20240712000611

PATIENT

DRUGS (6)
  1. CLOBAZAM [Suspect]
     Active Substance: CLOBAZAM
     Dosage: 10 MG
     Route: 048
     Dates: start: 1993, end: 20230403
  2. CLOBAZAM [Suspect]
     Active Substance: CLOBAZAM
     Dosage: 10 MG
     Route: 048
     Dates: start: 2004
  3. CLOBAZAM [Suspect]
     Active Substance: CLOBAZAM
     Dosage: 20 MG, Q12H (20MG FREQUENCY 1 IN THE MORNING AND 1 AT NIGHT )
     Route: 048
     Dates: start: 20230403
  4. CLOBAZAM [Suspect]
     Active Substance: CLOBAZAM
     Indication: Epilepsy
  5. LEVETIRACETAM [Concomitant]
     Active Substance: LEVETIRACETAM
     Indication: Epilepsy
     Dosage: 1000 MG, TAKEN IN THE EVENING
  6. PHENYTOIN [Concomitant]
     Active Substance: PHENYTOIN
     Indication: Product used for unknown indication
     Dosage: UNK
     Dates: end: 202304

REACTIONS (3)
  - Epilepsy [Recovered/Resolved]
  - Drug ineffective [Recovered/Resolved]
  - Thyroid disorder [Recovered/Resolved]

NARRATIVE: CASE EVENT DATE: 20210101
